FAERS Safety Report 21583492 (Version 2)
Quarter: 2023Q1

REPORT INFORMATION
  Report Type: Spontaneous
  Country: US (occurrence: US)
  Receive Date: 20221111
  Receipt Date: 20230110
  Transmission Date: 20230418
  Serious: Yes (Death, Other)
  Sender: FDA-Public Use
  Company Number: US-BRISTOL-MYERS SQUIBB COMPANY-2022-134102

PATIENT
  Age: 98 Year
  Sex: Male

DRUGS (12)
  1. ELIQUIS [Suspect]
     Active Substance: APIXABAN
     Indication: Deep vein thrombosis
     Route: 048
     Dates: start: 20200421, end: 20210531
  2. ELIQUIS [Suspect]
     Active Substance: APIXABAN
     Route: 048
     Dates: start: 20210531, end: 20210928
  3. ATROPINE SULFATE [Concomitant]
     Active Substance: ATROPINE SULFATE
     Indication: Product used for unknown indication
     Dosage: 2 GTTS ORALLY Q 2 HR SCHED FOR EXCESSIVE ORAL SECRETIONS
     Route: 047
     Dates: start: 20211021
  4. ACETAMINOPHEN [Concomitant]
     Active Substance: ACETAMINOPHEN
     Indication: Product used for unknown indication
     Dosage: TAKE 1 CAPLET ORALLY DAILY AS NEEDED
     Route: 048
     Dates: start: 20200421
  5. BETAMETHASONE VALERATE [Concomitant]
     Active Substance: BETAMETHASONE VALERATE
     Indication: Product used for unknown indication
     Dosage: 1 APPLICATION TOPICALLY TO AFFECTED AREA DAILY (BACK OF THE NECK) 14 DAYS
     Route: 061
     Dates: start: 20210810
  6. LEVOTHYROXINE SODIUM [Concomitant]
     Active Substance: LEVOTHYROXINE SODIUM
     Indication: Hypothyroidism
     Dosage: TAKE 1 TABLET (75 MCG) BY MOUTH DAILY FOR HYPOTHYROIDISM
     Route: 048
     Dates: start: 20191030
  7. LIDOCAINE HYDROCHLORIDE [Concomitant]
     Active Substance: LIDOCAINE HYDROCHLORIDE
     Indication: Neck pain
     Dosage: APPLY TO CERVICAL AREA (BACK OF NECK) 3 TIMES DAILY FOR NECK PAIN
     Dates: start: 20210412
  8. LORATADINE [Concomitant]
     Active Substance: LORATADINE
     Indication: Rhinorrhoea
     Dosage: TAKE 1 TABLET (10 MG) BY MOUTH DAILY PRN FOR RUNNY NOSE
     Dates: start: 20210418
  9. LORAZEPAM [Concomitant]
     Active Substance: LORAZEPAM
     Indication: Anxiety
     Dosage: 2MG/ML ORAL CONCENTRATE. GIVE 0.25 ML = 0.5 MG Q 6 HR SCHEDULE FOR ANXIETY
     Route: 048
     Dates: start: 20211021
  10. DULCOLAX MILK OF MAGNESIA [MAGNESIUM HYDROXIDE] [Concomitant]
     Indication: Constipation
     Dosage: 30 ML DAILY AS NEEDED FOR CONSTIPATION
     Route: 048
  11. NEOMYCIN;TRIAMCINOLONE [Concomitant]
     Indication: Wound
     Dosage: 100000 - 0.1 UNIT/GM% EXTERNAL OINTMENT = 1 APPLICATION TOPICALLY TO AFFECTED AREA 2 TIMES PER DAY
     Route: 061
     Dates: start: 20200209
  12. METAMUCIL [Concomitant]
     Active Substance: PLANTAGO SEED
     Dosage: 28.3% POWDER = 7.5 GRAMS ORALLY QD IN 8 OZ OF FLUID
     Route: 048
     Dates: start: 20201026

REACTIONS (18)
  - Acute respiratory failure [Fatal]
  - Lung neoplasm malignant [Unknown]
  - Dysphagia [Unknown]
  - Wound [Unknown]
  - Dyspnoea [Unknown]
  - Pain [Unknown]
  - Asthenia [Unknown]
  - Muscle strength abnormal [Unknown]
  - Neck pain [Unknown]
  - Anxiety [Unknown]
  - Salivary hypersecretion [Unknown]
  - Mobility decreased [Unknown]
  - Fatigue [Unknown]
  - Contusion [Unknown]
  - Urine output decreased [Unknown]
  - Musculoskeletal stiffness [Unknown]
  - Loss of consciousness [Unknown]
  - Skin disorder [Unknown]
